FAERS Safety Report 6366358-1 (Version None)
Quarter: 2009Q3

REPORT INFORMATION
  Report Type: 
  Country: None (occurrence: None)
  Receive Date: 20090915
  Receipt Date: 20090907
  Transmission Date: 20100115
  Serious: Yes (Hospitalization)
  Sender: FDA-Public Use
  Company Number: 2009AL005870

PATIENT
  Age: 59 Year
  Sex: Male

DRUGS (10)
  1. DICLOFENAC SODIUM [Suspect]
     Dosage: 300 MG, PO
     Route: 048
     Dates: end: 20070920
  2. DALTEPARIN SODIUM [Concomitant]
  3. RANITIDINE [Concomitant]
  4. ORAMORPH SR [Concomitant]
  5. PARACETAMOL [Concomitant]
  6. NICOTINE [Concomitant]
  7. METOCLOPRAMIDE [Concomitant]
  8. MST [Concomitant]
  9. GEMCITABINE [Concomitant]
  10. CARBOPLATIN [Concomitant]

REACTIONS (1)
  - GASTROINTESTINAL HAEMORRHAGE [None]
